FAERS Safety Report 19784574 (Version 1)
Quarter: 2021Q3

REPORT INFORMATION
  Report Type: Spontaneous
  Country: US (occurrence: US)
  Receive Date: 20210901
  Receipt Date: 20210901
  Transmission Date: 20211014
  Serious: Yes (Hospitalization)
  Sender: FDA-Public Use
  Company Number: None

PATIENT
  Sex: Male

DRUGS (1)
  1. MYCOPHENOLIC ACID DR 180MG [Suspect]
     Active Substance: MYCOPHENOLIC ACID
     Indication: RENAL TRANSPLANT
     Route: 048
     Dates: start: 20201116

REACTIONS (8)
  - Dialysis [None]
  - Therapy interrupted [None]
  - Chills [None]
  - Nausea [None]
  - Pyrexia [None]
  - COVID-19 [None]
  - Vomiting [None]
  - Infection [None]
